FAERS Safety Report 9509890 (Version 2)
Quarter: 2013Q3

REPORT INFORMATION
  Report Type: Spontaneous
  Country: US (occurrence: US)
  Receive Date: 20130909
  Receipt Date: 20130909
  Transmission Date: 20140515
  Serious: No
  Sender: FDA-Public Use
  Company Number: US-BRISTOL-MYERS SQUIBB COMPANY-18827907

PATIENT
  Age: 32 Year
  Sex: Male
  Weight: 80.72 kg

DRUGS (4)
  1. ABILIFY TABS 5 MG [Suspect]
     Indication: AFFECTIVE DISORDER
     Dosage: 2.5 MG:CONT
     Route: 048
     Dates: start: 20130401
  2. VICODIN ES [Suspect]
     Indication: PAIN
     Dates: start: 20130408
  3. CLINDAMYCIN [Suspect]
  4. ZYRTEC [Concomitant]

REACTIONS (5)
  - Anxiety [Recovering/Resolving]
  - Abnormal dreams [Unknown]
  - Tooth extraction [Recovered/Resolved]
  - Insomnia [Unknown]
  - Tachycardia [Recovering/Resolving]
